FAERS Safety Report 11052062 (Version 1)
Quarter: 2015Q2

REPORT INFORMATION
  Report Type: Spontaneous
  Country: US (occurrence: US)
  Receive Date: 20150421
  Receipt Date: 20150421
  Transmission Date: 20150821
  Serious: Yes (Hospitalization)
  Sender: FDA-Public Use
  Company Number: US-BAYER-2015-094438

PATIENT
  Age: 64 Year
  Sex: Male

DRUGS (1)
  1. STIVARGA [Suspect]
     Active Substance: REGORAFENIB
     Indication: COLON CANCER
     Dosage: DAILY DOSE 160 MG FOR 21 DAYS THEN OFF 7
     Route: 048
     Dates: start: 201501, end: 20150201

REACTIONS (2)
  - Intestinal obstruction [None]
  - Haematochezia [None]

NARRATIVE: CASE EVENT DATE: 20150201
